FAERS Safety Report 7057716-0 (Version None)
Quarter: 2010Q4

REPORT INFORMATION
  Report Type: 
  Country: None (occurrence: None)
  Receive Date: 20101022
  Receipt Date: 20101018
  Transmission Date: 20110411
  Serious: Yes (Other)
  Sender: FDA-Public Use
  Company Number: US-PFIZER INC-2010132761

PATIENT
  Sex: Female
  Weight: 54 kg

DRUGS (4)
  1. CHANTIX [Suspect]
     Indication: SMOKING CESSATION THERAPY
     Dosage: UNK
     Route: 048
     Dates: start: 20080101, end: 20080101
  2. CHANTIX [Suspect]
     Dosage: 0.5 MG, 1X/DAY
     Dates: start: 20100901
  3. XYREM [Concomitant]
     Dosage: UNK
  4. RITALIN [Concomitant]
     Dosage: UNK

REACTIONS (3)
  - MALAISE [None]
  - RENAL NEOPLASM [None]
  - SKIN DISCOLOURATION [None]
